FAERS Safety Report 13587667 (Version 1)
Quarter: 2017Q2

REPORT INFORMATION
  Report Type: Spontaneous
  Country: GB (occurrence: GB)
  Receive Date: 20170526
  Receipt Date: 20170526
  Transmission Date: 20170830
  Serious: Yes (Other)
  Sender: FDA-Public Use
  Company Number: GB-009507513-1705GBR013972

PATIENT
  Age: 72 Year
  Sex: Female

DRUGS (3)
  1. CYCLOSPORINE. [Suspect]
     Active Substance: CYCLOSPORINE
     Indication: PLASMA CELL MYELOMA
     Dosage: UNKNOWN (UNKNOWN)
     Route: 065
     Dates: start: 20160129
  2. DEXAMETHASONE. [Suspect]
     Active Substance: DEXAMETHASONE
     Indication: PLASMA CELL MYELOMA
     Dosage: UNKNOWN (UNKNOWN)
     Route: 065
     Dates: start: 20160129
  3. LENALIDOMIDE [Suspect]
     Active Substance: LENALIDOMIDE
     Indication: PLASMA CELL MYELOMA
     Dosage: UNKNOWN (UNKNOWN)
     Route: 065
     Dates: start: 20160129

REACTIONS (4)
  - Blood albumin decreased [Unknown]
  - Plasma cell myeloma recurrent [Unknown]
  - Product use in unapproved indication [Unknown]
  - Glomerular filtration rate decreased [Unknown]

NARRATIVE: CASE EVENT DATE: 20160129
